FAERS Safety Report 4999882-4 (Version None)
Quarter: 2006Q2

REPORT INFORMATION
  Report Type: 
  Country: None (occurrence: None)
  Receive Date: 20060510
  Receipt Date: 20060510
  Transmission Date: 20061013
  Serious: Yes (Life-Threatening, Hospitalization)
  Sender: FDA-Public Use
  Company Number: None

PATIENT
  Age: 14 Year
  Sex: Female

DRUGS (1)
  1. ONCASPAR [Suspect]
     Indication: NON-HODGKIN'S LYMPHOMA
     Dosage: 1350 UNITS ONE TIME IV
     Route: 042

REACTIONS (1)
  - PULMONARY EMBOLISM [None]
